FAERS Safety Report 19148116 (Version 1)
Quarter: 2021Q2

REPORT INFORMATION
  Report Type: Spontaneous
  Country: DE (occurrence: US)
  Receive Date: 20210416
  Receipt Date: 20210416
  Transmission Date: 20210717
  Serious: Yes (Life-Threatening, Hospitalization, Other)
  Sender: FDA-Public Use
  Company Number: US-ELI_LILLY_AND_COMPANY-US202104007342

PATIENT
  Age: 63 Year
  Sex: Male

DRUGS (1)
  1. CETUXIMAB. [Suspect]
     Active Substance: CETUXIMAB
     Indication: KERATINISING SQUAMOUS CELL CARCINOMA OF NASOPHARYNX
     Dosage: UNK UNK, UNKNOWN
     Route: 065

REACTIONS (5)
  - Pneumonia [Unknown]
  - Septic shock [Unknown]
  - Respiratory failure [Unknown]
  - Immunodeficiency [Unknown]
  - Off label use [Unknown]
